FAERS Safety Report 10886121 (Version 3)
Quarter: 2016Q1

REPORT INFORMATION
  Report Type: Spontaneous
  Country: US (occurrence: US)
  Receive Date: 20150304
  Receipt Date: 20160218
  Transmission Date: 20160525
  Serious: Yes (Hospitalization, Disabling, Other)
  Sender: FDA-Public Use
  Company Number: US-009507513-1503USA001376

PATIENT
  Sex: Female
  Weight: 83.9 kg

DRUGS (1)
  1. JANUVIA [Suspect]
     Active Substance: SITAGLIPTIN PHOSPHATE
     Indication: TYPE 2 DIABETES MELLITUS
     Dosage: 100 MG, QD
     Route: 048
     Dates: start: 20101211, end: 20110318

REACTIONS (13)
  - Peritonitis [Unknown]
  - Urinary tract infection bacterial [Unknown]
  - Pancreatic neuroendocrine tumour metastatic [Unknown]
  - Anaemia [Unknown]
  - Gastrointestinal angiodysplasia haemorrhagic [Unknown]
  - Pulmonary embolism [Unknown]
  - Pancreatic carcinoma [Unknown]
  - Cholelithiasis [Unknown]
  - Lymphadenectomy [Unknown]
  - Myopia [Unknown]
  - Hypokalaemia [Unknown]
  - Hiatus hernia [Unknown]
  - Anaemia [Unknown]

NARRATIVE: CASE EVENT DATE: 2010
